FAERS Safety Report 9254686 (Version 2)
Quarter: 2013Q2

REPORT INFORMATION
  Report Type: Spontaneous
  Country: NL (occurrence: NL)
  Receive Date: 20130425
  Receipt Date: 20130524
  Transmission Date: 20140414
  Serious: Yes (Life-Threatening, Other)
  Sender: FDA-Public Use
  Company Number: NL-ROCHE-1217556

PATIENT
  Age: 65 Year
  Sex: Female
  Weight: 86 kg

DRUGS (7)
  1. BONVIVA [Suspect]
     Indication: OSTEOPOROSIS
     Route: 048
     Dates: start: 20030401, end: 20130409
  2. CARBASALAATCALCIUM [Concomitant]
     Route: 048
  3. NUTRIDRINK [Concomitant]
     Route: 048
  4. AMITRIPTYLINE [Concomitant]
     Dosage: 1 DD 2
     Route: 048
  5. PERSANTIN RETARD [Concomitant]
     Route: 048
  6. LOSEC MUPS [Concomitant]
     Dosage: 1 DD 1
     Route: 048
  7. ATORVASTATIN [Concomitant]
     Dosage: 1 DD 1
     Route: 048

REACTIONS (1)
  - Oesophagitis [Recovering/Resolving]
